FAERS Safety Report 7717552-6 (Version None)
Quarter: 2011Q3

REPORT INFORMATION
  Report Type: 
  Country: None (occurrence: None)
  Receive Date: 20110823
  Receipt Date: 20070919
  Transmission Date: 20111222
  Serious: Yes (Other)
  Sender: FDA-Public Use
  Company Number: 2007061719

PATIENT
  Age: 49 Year
  Sex: Male
  Weight: 115.2 kg

DRUGS (5)
  1. ANTI-THYMOCYTE GLOBULIN NOS [Suspect]
     Indication: MYELOFIBROSIS
     Dosage: (40 MG/KG, 4 IN 1 D), INTRAVENOUS
     Route: 042
     Dates: start: 20070723
  2. ANTI-THYMOCYTE GLOBULIN NOS [Suspect]
     Indication: BONE MARROW FAILURE
     Dosage: (40 MG/KG, 4 IN 1 D), INTRAVENOUS
     Route: 042
     Dates: start: 20070723
  3. ANTI-THYMOCYTE GLOBULIN NOS [Suspect]
     Indication: MYELODYSPLASTIC SYNDROME
     Dosage: (40 MG/KG, 4 IN 1 D), INTRAVENOUS
     Route: 042
     Dates: start: 20070723
  4. HYDROCORTISONE ACETATE [Suspect]
     Dosage: 7.5MG (DAILY)
  5. SANDIMMUNE [Concomitant]

REACTIONS (4)
  - CHILLS [None]
  - URTICARIA [None]
  - PYREXIA [None]
  - HYPERGLYCAEMIA [None]
